FAERS Safety Report 7929758-1 (Version None)
Quarter: 2011Q4

REPORT INFORMATION
  Report Type: 
  Country: None (occurrence: None)
  Receive Date: 20111121
  Receipt Date: 20111114
  Transmission Date: 20120403
  Serious: Yes (Hospitalization)
  Sender: FDA-Public Use
  Company Number: AU-JNJFOC-20111005966

PATIENT
  Sex: Female

DRUGS (8)
  1. STELARA [Suspect]
     Indication: PRODUCT USED FOR UNKNOWN INDICATION
     Route: 058
     Dates: start: 20111003, end: 20111003
  2. METFORMIN HCL [Concomitant]
  3. VALPROATE SODIUM [Concomitant]
  4. DOXEPIN HYDROCHLORIDE [Concomitant]
  5. STELAZINE [Concomitant]
  6. ZOLOFT [Concomitant]
  7. FOLIC ACID [Concomitant]
  8. THYROXIN [Concomitant]

REACTIONS (4)
  - SWELLING [None]
  - AGGRESSION [None]
  - HEADACHE [None]
  - PRURITUS [None]
